FAERS Safety Report 4382290-7 (Version None)
Quarter: 2004Q2

REPORT INFORMATION
  Report Type: 
  Country: None (occurrence: None)
  Receive Date: 20040621
  Receipt Date: 20040621
  Transmission Date: 20050107
  Serious: Yes (Other)
  Sender: FDA-Public Use
  Company Number: None

PATIENT
  Age: 46 Year
  Sex: Male
  Weight: 85.3 kg

DRUGS (1)
  1. IMOGAM RABIES [Suspect]

REACTIONS (11)
  - ANXIETY [None]
  - COUGH [None]
  - DIARRHOEA [None]
  - DRY MOUTH [None]
  - HEADACHE [None]
  - HYPOTENSION [None]
  - LACRIMATION INCREASED [None]
  - NASAL DRYNESS [None]
  - NAUSEA [None]
  - PRURITUS [None]
  - VOMITING [None]
